FAERS Safety Report 9709684 (Version 2)
Quarter: 2013Q4

REPORT INFORMATION
  Report Type: Report from Study
  Country: AR (occurrence: AR)
  Receive Date: 20131126
  Receipt Date: 20131224
  Transmission Date: 20140711
  Serious: Yes (Other)
  Sender: FDA-Public Use
  Company Number: PHHY2013AR135078

PATIENT
  Sex: Female

DRUGS (1)
  1. DIOVAN [Suspect]
     Indication: HYPERTENSION
     Dosage: 160 MG, QD
     Route: 048

REACTIONS (4)
  - Aortic aneurysm [Recovering/Resolving]
  - Hypertension [Recovering/Resolving]
  - Blood cholesterol abnormal [Recovering/Resolving]
  - Hyperthyroidism [Recovering/Resolving]
